FAERS Safety Report 9614373 (Version 1)
Quarter: 2013Q4

REPORT INFORMATION
  Report Type: Spontaneous
  Country: US (occurrence: None)
  Receive Date: 20131008
  Receipt Date: 20131008
  Transmission Date: 20140711
  Serious: No
  Sender: FDA-Public Use
  Company Number: None

PATIENT
  Age: 55 Year
  Sex: Female

DRUGS (1)
  1. TECFIDERA [Suspect]
     Indication: MULTIPLE SCLEROSIS
     Dosage: 240MG TWICE DAILY BY MOUTH
     Dates: start: 20130802

REACTIONS (11)
  - Gastrointestinal disorder [None]
  - Fatigue [None]
  - Headache [None]
  - Arthralgia [None]
  - Pain in extremity [None]
  - Pain in extremity [None]
  - Gait disturbance [None]
  - Vision blurred [None]
  - Dizziness [None]
  - Gingival pain [None]
  - Oral pain [None]
